FAERS Safety Report 25187086 (Version 1)
Quarter: 2025Q2

REPORT INFORMATION
  Report Type: Other
  Country: US (occurrence: US)
  Receive Date: 20250411
  Receipt Date: 20250411
  Transmission Date: 20250716
  Serious: Yes (Death, Other)
  Sender: ALVOGEN
  Company Number: US-ALVOGEN-2025096686

PATIENT
  Age: 66 Year
  Sex: Female

DRUGS (5)
  1. FENTANYL [Suspect]
     Active Substance: FENTANYL
     Indication: Suicide attempt
     Route: 048
  2. MORPHINE [Suspect]
     Active Substance: MORPHINE
     Indication: Suicide attempt
     Route: 048
  3. METFORMIN [Suspect]
     Active Substance: METFORMIN HYDROCHLORIDE
     Indication: Suicide attempt
     Route: 048
  4. CANNABIS SATIVA SUBSP. INDICA TOP [Suspect]
     Active Substance: CANNABIS SATIVA SUBSP. INDICA TOP
     Indication: Suicide attempt
     Route: 048
  5. BENZODIAZEPINE [Suspect]
     Active Substance: BENZODIAZEPINE
     Indication: Suicide attempt
     Route: 048

REACTIONS (3)
  - Completed suicide [Fatal]
  - Prescription drug used without a prescription [Unknown]
  - Incorrect route of product administration [Unknown]
